FAERS Safety Report 13371814 (Version 1)
Quarter: 2017Q1

REPORT INFORMATION
  Report Type: Spontaneous
  Country: US (occurrence: US)
  Receive Date: 20170325
  Receipt Date: 20170325
  Transmission Date: 20170429
  Serious: No
  Sender: FDA-Public Use
  Company Number: US-MEDA-2017030037

PATIENT
  Age: 74 Year
  Sex: Male
  Weight: 82 kg

DRUGS (3)
  1. PAROXETINE. [Concomitant]
     Active Substance: PAROXETINE
     Indication: ANXIETY
  2. MUSE [Suspect]
     Active Substance: ALPROSTADIL
     Indication: ERECTILE DYSFUNCTION
     Route: 066
     Dates: start: 201702
  3. CLONAZEPAM. [Concomitant]
     Active Substance: CLONAZEPAM
     Indication: ANXIETY

REACTIONS (3)
  - Application site pain [Recovered/Resolved]
  - Wrong technique in product usage process [Recovered/Resolved]
  - Urethral haemorrhage [Recovered/Resolved]

NARRATIVE: CASE EVENT DATE: 201702
